FAERS Safety Report 24822682 (Version 1)
Quarter: 2025Q1

REPORT INFORMATION
  Report Type: Spontaneous
  Country: KR (occurrence: KR)
  Receive Date: 20250109
  Receipt Date: 20250109
  Transmission Date: 20250409
  Serious: No
  Sender: ALKEM
  Company Number: KR-ALKEM LABORATORIES LIMITED-KR-ALKEM-2024-06109

PATIENT

DRUGS (2)
  1. SILDENAFIL [Interacting]
     Active Substance: SILDENAFIL
     Indication: Prophylaxis
     Route: 065
  2. RIFAMPIN [Interacting]
     Active Substance: RIFAMPIN
     Indication: Prophylaxis
     Route: 065

REACTIONS (1)
  - Drug interaction [Unknown]
